FAERS Safety Report 5138939-4 (Version None)
Quarter: 2006Q4

REPORT INFORMATION
  Report Type: 
  Country: None (occurrence: None)
  Receive Date: 20061030
  Receipt Date: 20060518
  Transmission Date: 20070319
  Serious: No
  Sender: FDA-Public Use
  Company Number: US-GLAXOSMITHKLINE-A0606200A

PATIENT
  Age: 57 Year
  Sex: Male

DRUGS (2)
  1. ADVAIR HFA [Suspect]
     Indication: ASTHMA
     Route: 055
     Dates: start: 20060427
  2. NO CONCURRENT MEDICATION [Concomitant]

REACTIONS (6)
  - ACNE [None]
  - ASTHENIA [None]
  - DIZZINESS [None]
  - DYSPHONIA [None]
  - HYPOAESTHESIA [None]
  - NERVOUSNESS [None]
